FAERS Safety Report 15758746 (Version 1)
Quarter: 2018Q4

REPORT INFORMATION
  Report Type: Report from Study
  Country: CA (occurrence: CA)
  Receive Date: 20181225
  Receipt Date: 20181225
  Transmission Date: 20190205
  Serious: Yes (Other)
  Sender: FDA-Public Use
  Company Number: CA-AMGEN-CANSL2018182834

PATIENT
  Sex: Female

DRUGS (1)
  1. ENBREL [Suspect]
     Active Substance: ETANERCEPT
     Indication: RHEUMATOID ARTHRITIS
     Dosage: 50 MG, QWK
     Route: 058
     Dates: start: 20100913

REACTIONS (4)
  - Arthritis [Unknown]
  - Arthropathy [Unknown]
  - Hepatic fibrosis [Unknown]
  - Joint swelling [Unknown]

NARRATIVE: CASE EVENT DATE: 2010
